FAERS Safety Report 10977671 (Version 1)
Quarter: 2015Q1

REPORT INFORMATION
  Report Type: Spontaneous
  Country: US (occurrence: None)
  Receive Date: 20150226
  Receipt Date: 20150226
  Transmission Date: 20150721
  Serious: No
  Sender: FDA-Public Use
  Company Number: TPA2010A00470

PATIENT
  Age: 69 Year
  Sex: Male

DRUGS (1)
  1. ULORIC [Suspect]
     Active Substance: FEBUXOSTAT
     Route: 048
     Dates: start: 2009

REACTIONS (3)
  - Drug ineffective [None]
  - Condition aggravated [None]
  - Gout [None]
